FAERS Safety Report 8606006 (Version 2)
Quarter: 2016Q3

REPORT INFORMATION
  Report Type: Spontaneous
  Country: US (occurrence: US)
  Receive Date: 20120608
  Receipt Date: 20160804
  Transmission Date: 20161109
  Serious: Yes (Other)
  Sender: FDA-Public Use
  Company Number: US-ASTRAZENECA-2011SE65296

PATIENT
  Age: 62 Year
  Sex: Female
  Weight: 53.5 kg

DRUGS (7)
  1. ALPHA BLOCKER [Suspect]
     Active Substance: UNSPECIFIED INGREDIENT
     Route: 065
  2. LEXAPRIL [Concomitant]
     Active Substance: ESCITALOPRAM OXALATE
  3. ATACAND [Suspect]
     Active Substance: CANDESARTAN CILEXETIL
     Indication: HYPERTENSION
     Dosage: 16 MG; CUTTING THE ATACAND 16MG AND TAKING HALF A TABLET.
     Route: 048
  4. ATACAND [Suspect]
     Active Substance: CANDESARTAN CILEXETIL
     Indication: HYPERTENSION
     Route: 048
     Dates: start: 2001
  5. CLONIPINE [Concomitant]
     Active Substance: CLONAZEPAM
  6. BLOOD PRESSURE MEDICATION/DIURETICS/CHANNEL BLOCKER [Concomitant]
  7. ATACAND [Suspect]
     Active Substance: CANDESARTAN CILEXETIL
     Indication: HYPERTENSION
     Route: 048
     Dates: start: 201004

REACTIONS (9)
  - Intentional product misuse [Unknown]
  - Feeling abnormal [Unknown]
  - Asthenia [Unknown]
  - Syncope [Unknown]
  - Fatigue [Unknown]
  - Adverse drug reaction [Unknown]
  - Dizziness [Unknown]
  - Bradycardia [Unknown]
  - Drug ineffective [Unknown]
